FAERS Safety Report 9155685 (Version 2)
Quarter: 2013Q2

REPORT INFORMATION
  Report Type: Spontaneous
  Country: FR (occurrence: FR)
  Receive Date: 20130311
  Receipt Date: 20130424
  Transmission Date: 20140414
  Serious: Yes (Other)
  Sender: FDA-Public Use
  Company Number: FR-ASTRAZENECA-2013SE12503

PATIENT
  Age: 59 Year
  Sex: Male
  Weight: 63 kg

DRUGS (1)
  1. CAPRELSA [Suspect]
     Indication: THYROID CANCER
     Route: 048
     Dates: start: 2010

REACTIONS (3)
  - Staphylococcal skin infection [Recovering/Resolving]
  - Skin fibrosis [Recovering/Resolving]
  - Xerosis [Recovering/Resolving]
